FAERS Safety Report 8288940-7 (Version None)
Quarter: 2012Q2

REPORT INFORMATION
  Report Type: 
  Country: None (occurrence: None)
  Receive Date: 20120412
  Receipt Date: 20120401
  Transmission Date: 20120825
  Serious: Yes (Hospitalization, Other)
  Sender: FDA-Public Use
  Company Number: CL-402-2012

PATIENT
  Age: 55 Year
  Sex: Female

DRUGS (6)
  1. GLIMEPIRIDE [Concomitant]
  2. METFORMIN HCL [Concomitant]
  3. HALOPERIDOL [Suspect]
     Indication: SCHIZOPHRENIA
     Dosage: 150MG QD
  4. BIPERIDEN HYDROCHLORIDE TAB [Concomitant]
  5. ZOTEPINE [Suspect]
     Indication: SCHIZOPHRENIA
     Dosage: 350MG QD
  6. PROPRANOLOL [Concomitant]

REACTIONS (6)
  - HALLUCINATION, AUDITORY [None]
  - BLOOD GLUCOSE INCREASED [None]
  - DRUG INTERACTION [None]
  - HYPERHIDROSIS [None]
  - PARKINSONISM [None]
  - TREATMENT NONCOMPLIANCE [None]
